FAERS Safety Report 14614090 (Version 3)
Quarter: 2018Q1

REPORT INFORMATION
  Report Type: Report from Study
  Country: CA (occurrence: CA)
  Receive Date: 20180308
  Receipt Date: 20180321
  Transmission Date: 20180509
  Serious: Yes (Hospitalization)
  Sender: FDA-Public Use
  Company Number: CA-BAYER-2018-031748

PATIENT
  Age: 65 Year
  Sex: Male

DRUGS (2)
  1. ADEMPAS [Suspect]
     Active Substance: RIOCIGUAT
     Indication: PULMONARY ARTERIAL HYPERTENSION
     Dosage: 0.5 MG, TID
     Dates: start: 20180210
  2. ADEMPAS [Suspect]
     Active Substance: RIOCIGUAT
     Indication: PULMONARY ARTERIAL HYPERTENSION
     Dosage: UNK

REACTIONS (10)
  - Dizziness [Unknown]
  - Dizziness [Not Recovered/Not Resolved]
  - Lethargy [Unknown]
  - Alcohol abuse [Unknown]
  - Fall [Unknown]
  - Dizziness [Recovering/Resolving]
  - Hallucination [Unknown]
  - Blood pressure diastolic increased [Unknown]
  - Blood pressure diastolic decreased [Unknown]
  - Subdural haematoma [Unknown]

NARRATIVE: CASE EVENT DATE: 201801
